FAERS Safety Report 7414262-X (Version None)
Quarter: 2011Q1

REPORT INFORMATION
  Report Type: 
  Country: None (occurrence: None)
  Receive Date: 20110302
  Receipt Date: 20101201
  Transmission Date: 20110831
  Serious: Yes (Other)
  Sender: FDA-Public Use
  Company Number: 319423

PATIENT
  Age: 80 Year
  Sex: Male
  Weight: 79.4 kg

DRUGS (8)
  1. LOVENOX [Concomitant]
  2. FLOMAX /00889901/ (MORNIFLUMATE) [Concomitant]
  3. ALLOPURINOL [Concomitant]
  4. LASIX [Concomitant]
  5. NOVOLIN N [Suspect]
     Indication: TYPE 2 DIABETES MELLITUS
     Dosage: 15 U, SUBCUTANEOUS
     Route: 058
     Dates: start: 20091201, end: 20091222
  6. HUMULIN N [Concomitant]
  7. VERPAMIL HCL [Concomitant]
  8. DIGOXIN [Concomitant]

REACTIONS (1)
  - HYPOGLYCAEMIC UNCONSCIOUSNESS [None]
